FAERS Safety Report 14426373 (Version 1)
Quarter: 2018Q1

REPORT INFORMATION
  Report Type: Spontaneous
  Country: US (occurrence: US)
  Receive Date: 20180123
  Receipt Date: 20180123
  Transmission Date: 20180509
  Serious: No
  Sender: FDA-Public Use
  Company Number: US-ROCHE-2017284

PATIENT
  Age: 61 Year
  Sex: Female
  Weight: 45.85 kg

DRUGS (1)
  1. OCREVUS [Suspect]
     Active Substance: OCRELIZUMAB
     Indication: MULTIPLE SCLEROSIS
     Dosage: RECEIVED THE FIRST AND SECOND INFUSIONS ;ONGOING: UNKNOWN
     Route: 042
     Dates: start: 2017

REACTIONS (2)
  - Pain in extremity [Unknown]
  - Insomnia [Unknown]
